FAERS Safety Report 5202675-6 (Version None)
Quarter: 2006Q4

REPORT INFORMATION
  Report Type: 
  Country: None (occurrence: None)
  Receive Date: 20061018
  Receipt Date: 20050330
  Transmission Date: 20070319
  Serious: Yes (Other)
  Sender: FDA-Public Use
  Company Number: PHEH2005US03796

PATIENT
  Sex: Female

DRUGS (2)
  1. ZOLEDRONATE(ZOLEDRONATE) UNKNOWN [Suspect]
     Dosage: INTRAVENOUS
     Route: 042
  2. ARIMIDEX [Concomitant]

REACTIONS (1)
  - PYREXIA [None]
